FAERS Safety Report 25324821 (Version 3)
Quarter: 2025Q2

REPORT INFORMATION
  Report Type: Spontaneous
  Country: IT (occurrence: IT)
  Receive Date: 20250516
  Receipt Date: 20250609
  Transmission Date: 20250716
  Serious: Yes (Death, Hospitalization)
  Sender: MERCK SHARP & DOHME LLC
  Company Number: None

PATIENT
  Age: 68 Year
  Sex: Female
  Weight: 45 kg

DRUGS (1)
  1. KEYTRUDA [Suspect]
     Active Substance: PEMBROLIZUMAB
     Indication: Lung adenocarcinoma
     Route: 042
     Dates: start: 20250313, end: 20250313

REACTIONS (2)
  - Myoclonus [Fatal]
  - Epileptic encephalopathy [Fatal]

NARRATIVE: CASE EVENT DATE: 20250412
